FAERS Safety Report 5503225-7 (Version None)
Quarter: 2007Q4

REPORT INFORMATION
  Report Type: 
  Country: None (occurrence: None)
  Receive Date: 20071031
  Receipt Date: 20071019
  Transmission Date: 20080405
  Serious: Yes (Other)
  Sender: FDA-Public Use
  Company Number: US-PFIZER INC-2007088800

PATIENT
  Sex: Male
  Weight: 81.6 kg

DRUGS (8)
  1. LYRICA [Suspect]
     Indication: BACK INJURY
     Dates: start: 20070601, end: 20070901
  2. HYDROCODONE BITARTRATE [Concomitant]
  3. OXYCONTIN [Concomitant]
  4. BENICAR [Concomitant]
     Indication: HYPERTENSION
  5. CARTIA XT [Concomitant]
     Indication: HYPERTENSION
  6. ADVAIR DISKUS 100/50 [Concomitant]
  7. ADVAIR DISKUS 100/50 [Concomitant]
  8. SPIRIVA [Concomitant]

REACTIONS (6)
  - ASTHENOPIA [None]
  - CHROMATOPSIA [None]
  - POOR QUALITY SLEEP [None]
  - SLUGGISHNESS [None]
  - SOMNOLENCE [None]
  - VISION BLURRED [None]
